FAERS Safety Report 7406312-1 (Version None)
Quarter: 2011Q2

REPORT INFORMATION
  Report Type: 
  Country: None (occurrence: None)
  Receive Date: 20110411
  Receipt Date: 20110404
  Transmission Date: 20111010
  Serious: Yes (Death)
  Sender: FDA-Public Use
  Company Number: CH-MERCK-1104USA00496

PATIENT
  Age: 30 Year
  Sex: Male

DRUGS (1)
  1. PRIMAXIN [Suspect]
     Indication: BURKHOLDERIA PSEUDOMALLEI INFECTION
     Route: 042
     Dates: start: 20101101

REACTIONS (4)
  - SEPTIC SHOCK [None]
  - ACUTE RESPIRATORY DISTRESS SYNDROME [None]
  - MULTI-ORGAN FAILURE [None]
  - DRUG INEFFECTIVE [None]
